FAERS Safety Report 8831546 (Version 4)
Quarter: 2012Q4

REPORT INFORMATION
  Report Type: 
  Country: IL (occurrence: IL)
  Receive Date: 20121009
  Receipt Date: 20121101
  Transmission Date: 20130627
  Serious: Yes (Hospitalization, Disabling)
  Sender: FDA-Public Use
  Company Number: IL-B.I. PHARMACEUTICALS,INC./RIDGEFIELD-2012-AP-00780RI

PATIENT
  Age: 84 Year
  Sex: Female
  Weight: 65 kg

DRUGS (14)
  1. PRADAXA [Suspect]
     Indication: ATRIAL FIBRILLATION
     Dosage: 220 mg
     Route: 048
     Dates: start: 20120810, end: 20120918
  2. ALLORIL [Concomitant]
  3. BEZAFIBRATE [Concomitant]
  4. CARDILOC [Concomitant]
  5. FUSID [Concomitant]
  6. METFORMIN [Concomitant]
  7. OMEPRADEX [Concomitant]
     Dosage: caplets
  8. PRANDASE [Concomitant]
  9. PROCOR [Concomitant]
  10. PRAVASTATIN [Concomitant]
  11. STILLNOX [Concomitant]
  12. TIELLE [Concomitant]
     Dosage: hydropolymer adhesive dressing
  13. VABEN [Concomitant]
  14. REOLIN [Concomitant]

REACTIONS (5)
  - Gastrointestinal haemorrhage [Recovered/Resolved]
  - Haematochezia [Recovered/Resolved]
  - Diarrhoea haemorrhagic [Recovered/Resolved]
  - Coagulation time prolonged [Unknown]
  - Haemoglobin decreased [Not Recovered/Not Resolved]
